FAERS Safety Report 5595856-3 (Version None)
Quarter: 2008Q1

REPORT INFORMATION
  Report Type: 
  Country: None (occurrence: None)
  Receive Date: 20080118
  Receipt Date: 20080115
  Transmission Date: 20080703
  Serious: Yes (Death, Other)
  Sender: FDA-Public Use
  Company Number: US-ASTRAZENECA-2006UW07951

PATIENT
  Age: 48 Year
  Sex: Male
  Weight: 79.5 kg

DRUGS (1)
  1. SEROQUEL [Suspect]
     Indication: INSOMNIA
     Dosage: 50 TO 300 MG
     Route: 048
     Dates: start: 20000101, end: 20050101

REACTIONS (3)
  - DEATH [None]
  - DIABETES MELLITUS [None]
  - HEPATITIS C [None]
